FAERS Safety Report 23007987 (Version 3)
Quarter: 2024Q1

REPORT INFORMATION
  Report Type: Report from Study
  Country: CN (occurrence: CN)
  Receive Date: 20230929
  Receipt Date: 20240125
  Transmission Date: 20240410
  Serious: Yes (Hospitalization)
  Sender: FDA-Public Use
  Company Number: CN-ABBVIE-5427647

PATIENT
  Age: 24 Year
  Sex: Male
  Weight: 72 kg

DRUGS (10)
  1. UPADACITINIB [Suspect]
     Active Substance: UPADACITINIB
     Indication: Dermatitis atopic
     Dosage: FORM STRENGTH 15 MILLIGRAM
     Route: 048
     Dates: start: 20230531, end: 20230921
  2. UPADACITINIB [Suspect]
     Active Substance: UPADACITINIB
     Indication: Dermatitis atopic
     Dosage: FORM STRENGTH: 15 MILLIGRAM
     Route: 048
     Dates: start: 20231008
  3. UPADACITINIB [Suspect]
     Active Substance: UPADACITINIB
     Indication: Dermatitis atopic
     Dosage: FORM STRENGTH: 30 MILLIGRAM
     Route: 048
     Dates: start: 20230922, end: 20230924
  4. UPADACITINIB [Suspect]
     Active Substance: UPADACITINIB
     Indication: Dermatitis atopic
     Dosage: FORM STRENGTH:15 MILLIGRAM
     Route: 048
     Dates: start: 20230925, end: 20230926
  5. Compound Glycyrrhizin [Concomitant]
     Indication: Dermatitis atopic
     Dosage: TIME INTERVAL: 0.33333333 DAYS: 150 MILLIGRAM
     Dates: start: 20230901
  6. Compound Glycyrrhizin [Concomitant]
     Indication: Dermatitis atopic
     Dosage: TIME INTERVAL: 0.33333333 DAYS: 150 MILLIGRAM
     Dates: start: 20220808, end: 202208
  7. .ALPHA.-TOCOPHEROL\ALLANTOIN [Concomitant]
     Active Substance: .ALPHA.-TOCOPHEROL\ALLANTOIN
     Indication: Dermatitis atopic
     Dosage: ALLANTOIN VITAMIN E CREAM, 2 TIMES
     Route: 031
     Dates: start: 20230901
  8. TACROLIMUS [Concomitant]
     Active Substance: TACROLIMUS
     Indication: Dermatitis atopic
     Dosage: 0.1%, 2 TIMES
     Route: 031
     Dates: start: 20230707, end: 20230831
  9. TACROLIMUS [Concomitant]
     Active Substance: TACROLIMUS
     Indication: Dermatitis atopic
     Dosage: 0.03 , 2 TIMES
     Route: 031
     Dates: start: 20230901
  10. TACROLIMUS [Concomitant]
     Active Substance: TACROLIMUS
     Indication: Dermatitis atopic
     Dosage: 2 TIMES
     Dates: start: 20220808, end: 202208

REACTIONS (1)
  - Eczema herpeticum [Not Recovered/Not Resolved]

NARRATIVE: CASE EVENT DATE: 20230925
